FAERS Safety Report 14382820 (Version 4)
Quarter: 2018Q2

REPORT INFORMATION
  Report Type: Report from Study
  Country: US (occurrence: US)
  Receive Date: 20180113
  Receipt Date: 20180406
  Transmission Date: 20180711
  Serious: No
  Sender: FDA-Public Use
  Company Number: PHEH2018US001785

PATIENT
  Sex: Male

DRUGS (3)
  1. ENTRESTO [Suspect]
     Active Substance: SACUBITRIL\VALSARTAN
     Dosage: 0.5 DF, (97 MG OF SACUBITRIL/ 103 MG OF VALSARTAN),  UNK
     Route: 048
  2. ENTRESTO [Suspect]
     Active Substance: SACUBITRIL\VALSARTAN
     Indication: PRODUCT USED FOR UNKNOWN INDICATION
     Dosage: 1 DF (97 MG OF SACUBITRIL/ 103 MG OF VALSARTAN), BID
     Route: 048
  3. ENTRESTO [Suspect]
     Active Substance: SACUBITRIL\VALSARTAN
     Dosage: 100 MG (SACUBITRIL 49 MG AND VALSARTAN 51 MG), BID
     Route: 065

REACTIONS (6)
  - Wrong technique in product usage process [Unknown]
  - Dyspnoea [Unknown]
  - Insomnia [Unknown]
  - Dizziness [Unknown]
  - Restlessness [Unknown]
  - Drug ineffective [Unknown]
